FAERS Safety Report 9437474 (Version 1)
Quarter: 2013Q3

REPORT INFORMATION
  Report Type: Spontaneous
  Country: CA (occurrence: None)
  Receive Date: 20130731
  Receipt Date: 20130731
  Transmission Date: 20140515
  Serious: Yes (Hospitalization)
  Sender: FDA-Public Use
  Company Number: AUR-APL-2013-06186

PATIENT
  Age: 60 Year
  Sex: Male
  Weight: 61.1 kg

DRUGS (14)
  1. NEVIRAPINE [Suspect]
     Indication: ANTIRETROVIRAL THERAPY
  2. RIVAROXABAN [Suspect]
     Indication: PRODUCT USED FOR UNKNOWN INDICATION
  3. LAMIVUDINE [Concomitant]
  4. ZIDOVUDINE (ZIDOVUDINE) [Concomitant]
  5. AMLODIPINE (AMLODIPINE) [Concomitant]
  6. METOPROLOL (METOPROLOL) [Concomitant]
  7. LISINOPRIL (LISINOPRIL) [Concomitant]
  8. HYDROCHLOROTHIAZIDE (HYDROCHLOROTHIAZIDE) [Concomitant]
  9. ATORVASTATIN (ATORVASTATIN) [Concomitant]
  10. ACETYLSALICYLIC ACID (ACEYTLSALICYLIC ACID) [Concomitant]
  11. CELECOXIB (CELECOXIB) [Concomitant]
  12. OMEPRAZOLE (OMEPRAZOLE) [Concomitant]
  13. GABAPENTIN (GABAPENTIN) [Concomitant]
  14. LAMOTRIGINE (LAMOTRIGINE) [Concomitant]

REACTIONS (14)
  - Embolism venous [None]
  - Mitral valve incompetence [None]
  - Chest pain [None]
  - Drug interaction [None]
  - Dyspnoea [None]
  - Haemoglobin decreased [None]
  - Platelet count decreased [None]
  - Alanine aminotransferase decreased [None]
  - Oxygen saturation decreased [None]
  - Deep vein thrombosis [None]
  - Sinus tachycardia [None]
  - Venous pressure jugular increased [None]
  - Tricuspid valve incompetence [None]
  - Troponin T increased [None]
